FAERS Safety Report 7510394-6 (Version None)
Quarter: 2011Q2

REPORT INFORMATION
  Report Type: 
  Country: None (occurrence: None)
  Receive Date: 20110527
  Receipt Date: 20110519
  Transmission Date: 20111010
  Serious: Yes (Disabling)
  Sender: FDA-Public Use
  Company Number: US-MERCK-1102USA00333

PATIENT
  Age: 62 Year
  Sex: Female

DRUGS (8)
  1. FOSAMAX [Suspect]
     Route: 048
     Dates: start: 20060101, end: 20070101
  2. BONIVA [Concomitant]
     Indication: OSTEOPOROSIS
     Route: 048
     Dates: start: 20060201, end: 20060101
  3. ALENDRONATE SODIUM [Suspect]
     Indication: OSTEOPOROSIS
     Route: 048
     Dates: start: 20080101, end: 20100101
  4. OMEPRAZOLE [Concomitant]
     Route: 065
     Dates: start: 20080101
  5. FOSAMAX [Suspect]
     Indication: OSTEOPOROSIS
     Route: 048
     Dates: start: 20030101, end: 20050101
  6. VITAMINS (UNSPECIFIED) [Concomitant]
     Route: 065
     Dates: start: 19980101
  7. SYNTHROID [Concomitant]
     Indication: HYPOTHYROIDISM
     Route: 065
     Dates: start: 20060101, end: 20070101
  8. CALCIUM (UNSPECIFIED) AND VITAMIN D (UNSPECIFIED) [Concomitant]
     Route: 065
     Dates: start: 19980101

REACTIONS (8)
  - LOW TURNOVER OSTEOPATHY [None]
  - HYPERTENSION [None]
  - FEMUR FRACTURE [None]
  - OSTEOARTHRITIS [None]
  - OSTEOPOROSIS [None]
  - HYPERCHOLESTEROLAEMIA [None]
  - STRESS FRACTURE [None]
  - METABOLIC DISORDER [None]
